FAERS Safety Report 15961767 (Version 4)
Quarter: 2019Q1

REPORT INFORMATION
  Report Type: Report from Study
  Country: CO (occurrence: CO)
  Receive Date: 20190214
  Receipt Date: 20190314
  Transmission Date: 20190417
  Serious: Yes (Death, Hospitalization, Other)
  Sender: FDA-Public Use
  Company Number: CO-ACTELION-A-CH2019-186071

PATIENT
  Age: 67 Year
  Sex: Female
  Weight: 55 kg

DRUGS (2)
  1. OPSUMIT [Suspect]
     Active Substance: MACITENTAN
     Dosage: 10 MG, QD
     Route: 048
     Dates: start: 20190204, end: 20190304
  2. OPSUMIT [Suspect]
     Active Substance: MACITENTAN
     Indication: PULMONARY ARTERIAL HYPERTENSION
     Dosage: 10 MG, QD
     Route: 048
     Dates: start: 20181110, end: 20190129

REACTIONS (13)
  - Dysstasia [Not Recovered/Not Resolved]
  - Dysphonia [Not Recovered/Not Resolved]
  - Oedema peripheral [Not Recovered/Not Resolved]
  - Headache [Not Recovered/Not Resolved]
  - Respiratory failure [Unknown]
  - Fluid retention [Not Recovered/Not Resolved]
  - Depressed mood [Not Recovered/Not Resolved]
  - Gait disturbance [Not Recovered/Not Resolved]
  - Aphonia [Not Recovered/Not Resolved]
  - Cardio-respiratory arrest [Fatal]
  - Myocardial infarction [Not Recovered/Not Resolved]
  - Liver disorder [Not Recovered/Not Resolved]
  - Therapy cessation [Unknown]

NARRATIVE: CASE EVENT DATE: 20190129
